FAERS Safety Report 20112962 (Version 1)
Quarter: 2021Q4

REPORT INFORMATION
  Report Type: Other
  Country: TW (occurrence: None)
  Receive Date: 20211125
  Receipt Date: 20211125
  Transmission Date: 20220303
  Serious: Yes (Other)
  Sender: FDA-Public Use
  Company Number: TW-ROCHE-2959199

PATIENT
  Age: 22 Year
  Sex: Male

DRUGS (1)
  1. OSELTAMIVIR [Suspect]
     Active Substance: OSELTAMIVIR
     Indication: Pneumocystis jirovecii pneumonia
     Route: 048

REACTIONS (2)
  - Pneumocystis jirovecii pneumonia [Unknown]
  - Drug ineffective [Unknown]
